FAERS Safety Report 5699110-0 (Version None)
Quarter: 2008Q2

REPORT INFORMATION
  Report Type: 
  Country: None (occurrence: None)
  Receive Date: 20080407
  Receipt Date: 20080407
  Transmission Date: 20081010
  Serious: Yes (Other)
  Sender: FDA-Public Use
  Company Number: None

PATIENT
  Age: 63 Year
  Sex: Female
  Weight: 81.1939 kg

DRUGS (2)
  1. ZOCOR [Suspect]
     Indication: BLOOD CHOLESTEROL INCREASED
     Dosage: 40 MG AT BEDTIME
     Dates: start: 20080314, end: 20080406
  2. ZOCOR [Suspect]
     Indication: CORONARY ARTERY DISEASE
     Dosage: 40 MG AT BEDTIME
     Dates: start: 20080314, end: 20080406

REACTIONS (13)
  - ABDOMINAL DISTENSION [None]
  - ARTHRALGIA [None]
  - CRYING [None]
  - FEAR [None]
  - INSOMNIA [None]
  - MYALGIA [None]
  - NERVOUS SYSTEM DISORDER [None]
  - NO THERAPEUTIC RESPONSE [None]
  - OEDEMA PERIPHERAL [None]
  - SCREAMING [None]
  - SELF INJURIOUS BEHAVIOUR [None]
  - THINKING ABNORMAL [None]
  - ULCER HAEMORRHAGE [None]
